FAERS Safety Report 6575793-8 (Version None)
Quarter: 2010Q1

REPORT INFORMATION
  Report Type: 
  Country: None (occurrence: None)
  Receive Date: 20100208
  Receipt Date: 20100208
  Transmission Date: 20100710
  Serious: Yes (Congenital Anomaly, Other)
  Sender: FDA-Public Use
  Company Number: None

PATIENT
  Sex: Female
  Weight: 90.7194 kg

DRUGS (2)
  1. RECLAST [Suspect]
     Indication: HIP FRACTURE
     Dosage: 5MG ANNUAL IV
     Route: 042
     Dates: start: 20091201, end: 20091201
  2. RECLAST [Suspect]
     Indication: OSTEOPOROSIS
     Dosage: 5MG ANNUAL IV
     Route: 042
     Dates: start: 20091201, end: 20091201

REACTIONS (2)
  - OSTEONECROSIS [None]
  - TOOTH EXTRACTION [None]
